FAERS Safety Report 5780120-X (Version None)
Quarter: 2008Q2

REPORT INFORMATION
  Report Type: 
  Country: None (occurrence: None)
  Receive Date: 20080620
  Receipt Date: 20080611
  Transmission Date: 20081010
  Serious: Yes (Other)
  Sender: FDA-Public Use
  Company Number: DK-JNJFOC-20080406450

PATIENT
  Sex: Female

DRUGS (7)
  1. DOXORUBICIN HCL [Suspect]
     Indication: OVARIAN CANCER
     Route: 042
  2. EFFEXOR [Concomitant]
     Route: 065
  3. IRBESARTAN [Concomitant]
     Route: 065
  4. UNICALCIUM [Concomitant]
     Route: 065
  5. TRANDATE [Concomitant]
     Route: 065
  6. NEXIUM [Concomitant]
     Route: 065
  7. OXYCONTIN [Concomitant]
     Route: 065

REACTIONS (6)
  - DERMATITIS BULLOUS [None]
  - ECZEMA [None]
  - NAIL BED BLEEDING [None]
  - NAIL BED INFECTION [None]
  - PAIN IN EXTREMITY [None]
  - RASH [None]
